FAERS Safety Report 7849083 (Version 3)
Quarter: 2013Q2

REPORT INFORMATION
  Report Type: Spontaneous
  Country: US (occurrence: US)
  Receive Date: 20110310
  Receipt Date: 20130617
  Transmission Date: 20140414
  Serious: No
  Sender: FDA-Public Use
  Company Number: US-PFIZER INC-2011050864

PATIENT
  Age: 51 Year
  Sex: Female

DRUGS (1)
  1. DILANTIN [Suspect]
     Dosage: 100 MG, UNK
     Route: 048

REACTIONS (2)
  - Headache [Unknown]
  - Product odour abnormal [Unknown]
